FAERS Safety Report 9268307 (Version 1)
Quarter: 2013Q2

REPORT INFORMATION
  Report Type: Spontaneous
  Country: US (occurrence: US)
  Receive Date: 20130502
  Receipt Date: 20130502
  Transmission Date: 20140414
  Serious: Yes (Other)
  Sender: FDA-Public Use
  Company Number: US-ELI_LILLY_AND_COMPANY-US201304007541

PATIENT
  Sex: Female

DRUGS (1)
  1. HUMULIN 30% REGULAR, 70% NPH [Suspect]
     Indication: BLOOD GLUCOSE INCREASED
     Dosage: UNK

REACTIONS (2)
  - Ovarian cancer stage IV [Unknown]
  - Blood glucose increased [Unknown]
